FAERS Safety Report 23719704 (Version 3)
Quarter: 2025Q1

REPORT INFORMATION
  Report Type: Spontaneous
  Country: US (occurrence: US)
  Receive Date: 20240408
  Receipt Date: 20250116
  Transmission Date: 20250409
  Serious: No
  Sender: PFIZER
  Company Number: US-PFIZER INC-PV202300198737

PATIENT
  Age: 83 Year
  Sex: Female
  Weight: 79.365 kg

DRUGS (7)
  1. MEKTOVI [Suspect]
     Active Substance: BINIMETINIB
     Indication: Metastatic malignant melanoma
  2. MEKTOVI [Suspect]
     Active Substance: BINIMETINIB
     Dosage: 45 MG, TAKE 2 TAB PO (PER ORAL) BID (TWICE A DAY)
     Route: 048
  3. MEKTOVI [Suspect]
     Active Substance: BINIMETINIB
  4. BRAFTOVI [Concomitant]
     Active Substance: ENCORAFENIB
     Indication: Metastatic malignant melanoma
  5. BRAFTOVI [Concomitant]
     Active Substance: ENCORAFENIB
     Dosage: 300 MG, TAKE 4 CAP PO (PER ORAL) QD (ONCE A DAY)
     Route: 048
  6. BRAFTOVI [Concomitant]
     Active Substance: ENCORAFENIB
     Dosage: TAKE 4 CAPSULES BY MOUTH DAILY
     Route: 048
  7. BRAFTOVI [Concomitant]
     Active Substance: ENCORAFENIB

REACTIONS (1)
  - Product prescribing error [Unknown]
